FAERS Safety Report 9950884 (Version 2)
Quarter: 2014Q1

REPORT INFORMATION
  Report Type: Report from Study
  Country: US (occurrence: US)
  Receive Date: 20140304
  Receipt Date: 20140304
  Transmission Date: 20141002
  Serious: Yes (Other)
  Sender: FDA-Public Use
  Company Number: US-ABBVIE-13P-163-1066424-00

PATIENT
  Age: 46 Year
  Sex: Female

DRUGS (2)
  1. HUMIRA [Suspect]
     Indication: ANKYLOSING SPONDYLITIS
     Route: 058
     Dates: start: 201209
  2. HUMIRA [Suspect]
     Dates: start: 20130318

REACTIONS (3)
  - Surgery [Unknown]
  - Bronchitis [Recovered/Resolved]
  - Influenza [Recovered/Resolved]
